FAERS Safety Report 6545986-4 (Version None)
Quarter: 2010Q1

REPORT INFORMATION
  Report Type: 
  Country: None (occurrence: None)
  Receive Date: 20100121
  Receipt Date: 20100121
  Transmission Date: 20100710
  Serious: No
  Sender: FDA-Public Use
  Company Number: None

PATIENT
  Age: 18 Year
  Sex: Male
  Weight: 71.6683 kg

DRUGS (2)
  1. RISPERIDONE [Suspect]
     Dosage: 2 MG HS PO
     Route: 048
  2. ABILIFY [Suspect]
     Dosage: 20 MG HS PO
     Route: 048

REACTIONS (1)
  - EXTRAPYRAMIDAL DISORDER [None]
